FAERS Safety Report 10736518 (Version 1)
Quarter: 2015Q1

REPORT INFORMATION
  Report Type: Spontaneous
  Country: US (occurrence: None)
  Receive Date: 20150123
  Receipt Date: 20150123
  Transmission Date: 20150721
  Serious: Yes (Hospitalization)
  Sender: FDA-Public Use
  Company Number: None

PATIENT
  Age: 64 Year
  Sex: Male
  Weight: 82.2 kg

DRUGS (1)
  1. AMLODIPINE BENAZEPRIL [Suspect]
     Active Substance: AMLODIPINE BESYLATE\BENAZEPRIL HYDROCHLORIDE
     Indication: HYPERTENSION
     Dosage: 1 TAB
     Route: 048
     Dates: start: 20100301, end: 20150106

REACTIONS (1)
  - Angioedema [None]

NARRATIVE: CASE EVENT DATE: 20150106
